FAERS Safety Report 4629243-9 (Version None)
Quarter: 2005Q2

REPORT INFORMATION
  Report Type: 
  Country: None (occurrence: None)
  Receive Date: 20050404
  Receipt Date: 20050404
  Transmission Date: 20051028
  Serious: No
  Sender: FDA-Public Use
  Company Number: None

PATIENT
  Sex: Female

DRUGS (2)
  1. PRED FORTE [Suspect]
     Indication: CORNEAL TRANSPLANT
     Dosage: 1 GTT (L) EYE Q2H WHILE AWAKE
  2. PRED FORTE [Suspect]
     Indication: TRANSPLANT REJECTION
     Dosage: 1 GTT (L) EYE Q2H WHILE AWAKE

REACTIONS (2)
  - PHARMACEUTICAL PRODUCT COMPLAINT [None]
  - TRANSPLANT REJECTION [None]
